FAERS Safety Report 9760403 (Version 1)
Quarter: 2013Q4

REPORT INFORMATION
  Report Type: Spontaneous
  Country: US (occurrence: US)
  Receive Date: 20131216
  Receipt Date: 20131216
  Transmission Date: 20140711
  Serious: No
  Sender: FDA-Public Use
  Company Number: US-GILEAD-2010-0029374

PATIENT
  Sex: Female
  Weight: 104.33 kg

DRUGS (7)
  1. LETAIRIS [Suspect]
     Indication: PULMONARY ARTERIAL HYPERTENSION
     Route: 048
     Dates: start: 20100120
  2. PREDNISONE [Concomitant]
  3. LEVAQUIN [Concomitant]
  4. NASONEX [Concomitant]
  5. SYMBICORT [Concomitant]
  6. CRESTOR [Concomitant]
  7. ADULT ASPIRIN [Concomitant]

REACTIONS (1)
  - Paraesthesia [Unknown]
